FAERS Safety Report 16815374 (Version 3)
Quarter: 2019Q4

REPORT INFORMATION
  Report Type: Report from Study
  Country: US (occurrence: US)
  Receive Date: 20190917
  Receipt Date: 20191028
  Transmission Date: 20200122
  Serious: No
  Sender: FDA-Public Use
  Company Number: US-JNJFOC-20190912553

PATIENT
  Sex: Male

DRUGS (2)
  1. IMBRUVICA [Suspect]
     Active Substance: IBRUTINIB
     Indication: LYMPHOCYTIC LEUKAEMIA
     Dosage: 280 MG, QD
     Route: 048
     Dates: start: 20190823
  2. IMBRUVICA [Suspect]
     Active Substance: IBRUTINIB
     Route: 048
     Dates: start: 20190824

REACTIONS (8)
  - Diarrhoea [Recovered/Resolved]
  - White blood cell count abnormal [Recovering/Resolving]
  - Platelet count decreased [Recovering/Resolving]
  - Abdominal discomfort [Unknown]
  - Haemoglobin abnormal [Recovered/Resolved]
  - Dizziness [Recovered/Resolved]
  - Abdominal distension [Unknown]
  - Nausea [Unknown]
